FAERS Safety Report 6065344-9 (Version None)
Quarter: 2009Q1

REPORT INFORMATION
  Report Type: 
  Country: None (occurrence: None)
  Receive Date: 20090204
  Receipt Date: 20090107
  Transmission Date: 20090719
  Serious: No
  Sender: FDA-Public Use
  Company Number: US-BAYER-200910439NA

PATIENT
  Age: 45 Year

DRUGS (2)
  1. MAGNEVIST [Suspect]
     Indication: NUCLEAR MAGNETIC RESONANCE IMAGING
     Dosage: TOTAL DAILY DOSE: 16 ML
     Dates: start: 20090106, end: 20090106
  2. CHEMOTHERAPY [Concomitant]
     Indication: BREAST CANCER

REACTIONS (3)
  - DYSPNOEA [None]
  - RETCHING [None]
  - URTICARIA [None]
